FAERS Safety Report 9976739 (Version 1)
Quarter: 2014Q1

REPORT INFORMATION
  Report Type: Report from Study
  Country: US (occurrence: US)
  Receive Date: 20140306
  Receipt Date: 20140306
  Transmission Date: 20141002
  Serious: No
  Sender: FDA-Public Use
  Company Number: US-ABBVIE-13P-163-1166105-00

PATIENT
  Age: 62 Year
  Sex: Female
  Weight: 74.46 kg

DRUGS (8)
  1. HUMIRA [Suspect]
     Indication: CROHN^S DISEASE
     Route: 058
     Dates: start: 20131015, end: 20131015
  2. HUMIRA [Suspect]
     Route: 058
     Dates: start: 20131030, end: 20131030
  3. IMURAN [Concomitant]
     Indication: CROHN^S DISEASE
  4. LEVOXYL [Concomitant]
     Indication: HYPOTHYROIDISM
  5. LIPITOR [Concomitant]
     Indication: BLOOD CHOLESTEROL INCREASED
  6. ONE A DAY WOMEN^S [Concomitant]
     Indication: VITAMIN SUPPLEMENTATION
  7. CANASA [Concomitant]
     Indication: CROHN^S DISEASE
  8. HYDROCORTISONE [Concomitant]
     Indication: HAEMORRHOIDS

REACTIONS (3)
  - Device malfunction [Unknown]
  - Injection site pain [Not Recovered/Not Resolved]
  - Injection site erythema [Not Recovered/Not Resolved]
